FAERS Safety Report 8809106 (Version 3)
Quarter: 2012Q4

REPORT INFORMATION
  Report Type: 
  Country: FR (occurrence: FR)
  Receive Date: 20120926
  Receipt Date: 20121008
  Transmission Date: 20130627
  Serious: Yes (Hospitalization, Other)
  Sender: FDA-Public Use
  Company Number: FR-PFIZER INC-2012234716

PATIENT
  Age: 80 Year
  Sex: Male

DRUGS (11)
  1. AMLOR [Suspect]
     Dosage: UNK
     Route: 048
     Dates: end: 20120827
  2. ROVAMYCIN [Suspect]
     Indication: TOOTH ABSCESS
     Dosage: UNK
     Route: 048
     Dates: start: 20120806, end: 20120812
  3. ROVAMYCIN [Suspect]
     Dosage: UNK
     Route: 048
     Dates: start: 20120827, end: 20120827
  4. ROVAMYCIN [Suspect]
     Dosage: UNK
     Route: 048
     Dates: start: 20120828, end: 20120830
  5. ROCEPHIN [Suspect]
     Dosage: UNK
     Route: 048
     Dates: start: 20120828, end: 20120830
  6. PARIET [Suspect]
     Dosage: UNK
     Route: 048
     Dates: end: 20120830
  7. RENITEC [Suspect]
     Dosage: UNK
     Route: 048
     Dates: end: 20120830
  8. KARDEGIC [Suspect]
     Dosage: UNK
     Route: 048
     Dates: end: 20120830
  9. FLAGYL [Concomitant]
     Indication: TOOTH ABSCESS
     Dosage: UNK
     Route: 048
     Dates: start: 20120806, end: 20120812
  10. FLAGYL [Concomitant]
     Dosage: UNK
     Route: 048
     Dates: start: 20120827
  11. SPAGULAX [Concomitant]

REACTIONS (2)
  - Thrombocytopenia [Recovering/Resolving]
  - Pulmonary sepsis [Unknown]
